FAERS Safety Report 6115969-7 (Version None)
Quarter: 2009Q1

REPORT INFORMATION
  Report Type: 
  Country: None (occurrence: None)
  Receive Date: 20090314
  Receipt Date: 20081211
  Transmission Date: 20090719
  Serious: No
  Sender: FDA-Public Use
  Company Number: US-ABBOTT-08P-163-0441015-00

PATIENT

DRUGS (4)
  1. ADALIMUMAB [Suspect]
     Indication: PATERNAL DRUGS AFFECTING FOETUS
     Route: 050
  2. ADALIMUMAB [Suspect]
  3. HYDROCODONE BITARTRATE AND IBUPROFEN [Suspect]
     Indication: PATERNAL DRUGS AFFECTING FOETUS
     Route: 050
  4. HYDROCODONE BITARTRATE AND IBUPROFEN [Suspect]

REACTIONS (4)
  - DRUG EXPOSURE DURING PREGNANCY [None]
  - LIVE BIRTH [None]
  - NORMAL NEWBORN [None]
  - PATERNAL DRUGS AFFECTING FOETUS [None]
